FAERS Safety Report 14571497 (Version 1)
Quarter: 2018Q1

REPORT INFORMATION
  Report Type: Spontaneous
  Country: US (occurrence: US)
  Receive Date: 20180226
  Receipt Date: 20180226
  Transmission Date: 20180509
  Serious: No
  Sender: FDA-Public Use
  Company Number: US-009507513-1801USA003242

PATIENT
  Sex: Female

DRUGS (1)
  1. NEXPLANON [Suspect]
     Active Substance: ETONOGESTREL
     Dosage: 1 ROD (STRENGTH: 68 MG) SUBDERMALLY EVERY 3 YEARS
     Route: 059

REACTIONS (2)
  - Implant site hypoaesthesia [Unknown]
  - Medical device site movement impairment [Unknown]

NARRATIVE: CASE EVENT DATE: 201712
